FAERS Safety Report 12883514 (Version 2)
Quarter: 2016Q4

REPORT INFORMATION
  Report Type: Spontaneous
  Country: VE (occurrence: VE)
  Receive Date: 20161025
  Receipt Date: 20161027
  Transmission Date: 20170207
  Serious: Yes (Hospitalization, Other)
  Sender: FDA-Public Use
  Company Number: PHHY2016VE119355

PATIENT
  Age: 3 Year
  Sex: Male
  Weight: 11 kg

DRUGS (13)
  1. TRILEPTAL [Suspect]
     Active Substance: OXCARBAZEPINE
     Dosage: 2 DF, QD
     Route: 048
  2. CLONAC//CLONAZEPAM [Concomitant]
     Dosage: 0.5 MG, QD
     Route: 065
  3. TRILEPTAL [Suspect]
     Active Substance: OXCARBAZEPINE
     Indication: CORTICAL DYSPLASIA
     Dosage: 600 MG, QD (300 MG)
     Route: 048
  4. OMEPRAZOLE. [Concomitant]
     Active Substance: OMEPRAZOLE
     Indication: REFLUX GASTRITIS
     Dosage: 1 MG, QD
     Route: 065
  5. TRILEPTAL [Suspect]
     Active Substance: OXCARBAZEPINE
     Indication: SEIZURE
     Dosage: 200 MG, QD
     Route: 048
  6. TRILEPTAL [Suspect]
     Active Substance: OXCARBAZEPINE
     Dosage: 450 MG, QD (600 MG) (0.25 DF IN THE MORNING AND 0.5 DF AT NIGHT)
     Route: 048
  7. CLONAC//CLONAZEPAM [Concomitant]
     Indication: SLEEP DISORDER
     Dosage: 0.25 MG, QD
     Route: 065
  8. PROVICAR//LEVOCARNITINE [Concomitant]
     Indication: WEIGHT DECREASED
     Dosage: 9 CM3, QD
     Route: 065
  9. TRILEPTAL [Suspect]
     Active Substance: OXCARBAZEPINE
     Indication: MICROCEPHALY
     Dosage: 600 MG, QD (600 MG)
     Route: 048
  10. TRILEPTAL [Suspect]
     Active Substance: OXCARBAZEPINE
     Dosage: 375 MG, QD (300 MG)(0.25 DF IN THE MORNING AND 1 DF AT NIGHT)
     Route: 048
  11. TRILEPTAL [Suspect]
     Active Substance: OXCARBAZEPINE
     Indication: SEIZURE
     Dosage: 6 ML, QD (2 ML IN THE MORNING AND 4 ML AT NIGHT)
     Route: 048
  12. BIPRIN [Concomitant]
     Indication: CEREBRAL DISORDER
     Dosage: 300 MG, QD
     Route: 065
  13. LORATADINE. [Concomitant]
     Active Substance: LORATADINE
     Indication: ADENOIDAL DISORDER
     Dosage: 6 CM3, QD
     Route: 065
     Dates: start: 20160821

REACTIONS (8)
  - Speech disorder [Recovering/Resolving]
  - Abasia [Recovering/Resolving]
  - Daydreaming [Recovering/Resolving]
  - Eating disorder [Recovering/Resolving]
  - Product use issue [Unknown]
  - Seizure [Recovering/Resolving]
  - Fatigue [Recovering/Resolving]
  - Wrong technique in product usage process [Unknown]
